FAERS Safety Report 7505500-3 (Version None)
Quarter: 2011Q2

REPORT INFORMATION
  Report Type: 
  Country: None (occurrence: None)
  Receive Date: 20110526
  Receipt Date: 20110523
  Transmission Date: 20111010
  Serious: No
  Sender: FDA-Public Use
  Company Number: JP-SANOFI-AVENTIS-2011SA030874

PATIENT

DRUGS (1)
  1. LASIX [Suspect]
     Route: 048

REACTIONS (1)
  - NO ADVERSE EVENT [None]
